FAERS Safety Report 25172863 (Version 1)
Quarter: 2025Q2

REPORT INFORMATION
  Report Type: Spontaneous
  Country: US (occurrence: None)
  Receive Date: 20250408
  Receipt Date: 20250408
  Transmission Date: 20250716
  Serious: Yes (Hospitalization)
  Sender: FDA-CTU
  Company Number: None

PATIENT
  Age: 68 Year
  Sex: Female
  Weight: 88.3 kg

DRUGS (2)
  1. FLUOROURACIL [Suspect]
     Active Substance: FLUOROURACIL
  2. MITOMYCIN C [Suspect]
     Active Substance: MITOMYCIN

REACTIONS (9)
  - Cough [None]
  - Pancytopenia [None]
  - Disseminated intravascular coagulation [None]
  - Thrombotic thrombocytopenic purpura [None]
  - Haemolytic uraemic syndrome [None]
  - Sepsis [None]
  - Febrile neutropenia [None]
  - Arthralgia [None]
  - Myositis [None]

NARRATIVE: CASE EVENT DATE: 20230619
